FAERS Safety Report 5727615-2 (Version None)
Quarter: 2008Q2

REPORT INFORMATION
  Report Type: 
  Country: None (occurrence: None)
  Receive Date: 20080505
  Receipt Date: 20080501
  Transmission Date: 20081010
  Serious: Yes (Death)
  Sender: FDA-Public Use
  Company Number: BR-BRISTOL-MYERS SQUIBB COMPANY-14116461

PATIENT
  Age: 56 Year
  Sex: Male

DRUGS (4)
  1. ABATACEPT [Suspect]
     Indication: RHEUMATOID ARTHRITIS
     Dosage: DOSAGE FORM = DOSE UNIT NOT SPECIFIED
     Route: 042
     Dates: start: 20080115, end: 20080320
  2. METHOTREXATE [Concomitant]
     Dates: start: 20070816
  3. SULFAMERAZINE [Concomitant]
     Dates: start: 20010601
  4. HYDROXYCHLOROQUINE SULFATE [Concomitant]
     Dates: start: 20041001

REACTIONS (2)
  - PNEUMONIA [None]
  - SEPTIC SHOCK [None]
